FAERS Safety Report 7289083-1 (Version None)
Quarter: 2011Q1

REPORT INFORMATION
  Report Type: 
  Country: None (occurrence: None)
  Receive Date: 20110211
  Receipt Date: 20110206
  Transmission Date: 20110831
  Serious: Yes (Hospitalization)
  Sender: FDA-Public Use
  Company Number: NL-MEDIMMUNE-MEDI-0012425

PATIENT
  Sex: Male
  Weight: 7.84 kg

DRUGS (2)
  1. SYNAGIS [Suspect]
     Route: 030
     Dates: start: 20110203, end: 20110203
  2. SYNAGIS [Suspect]
     Route: 030
     Dates: start: 20100913, end: 20110106

REACTIONS (8)
  - RESPIRATORY TRACT INFECTION [None]
  - COUGH [None]
  - OLIGODIPSIA [None]
  - POOR QUALITY SLEEP [None]
  - NASOPHARYNGITIS [None]
  - PNEUMONIA [None]
  - PYREXIA [None]
  - RESPIRATION ABNORMAL [None]
